FAERS Safety Report 5475527-4 (Version None)
Quarter: 2007Q4

REPORT INFORMATION
  Report Type: 
  Country: None (occurrence: None)
  Receive Date: 20071003
  Receipt Date: 20071001
  Transmission Date: 20080405
  Serious: Yes (Hospitalization)
  Sender: FDA-Public Use
  Company Number: GBWYE346620SEP07

PATIENT
  Sex: Female
  Weight: 60 kg

DRUGS (6)
  1. TYGACIL [Suspect]
     Indication: OSTEOMYELITIS
     Route: 042
     Dates: start: 20070910
  2. PARACETAMOL [Concomitant]
     Dosage: UNKNOWN
  3. LORATADINE [Concomitant]
     Dosage: UNKNOWN
  4. RANITIDINE [Concomitant]
     Dosage: UNKNOWN
  5. CIPRO [Suspect]
     Dates: end: 20070921
  6. CASPOFUNGIN ACETATE [Concomitant]
     Dosage: UNKNOWN

REACTIONS (2)
  - MOUTH ULCERATION [None]
  - TONGUE ULCERATION [None]
